FAERS Safety Report 9469407 (Version 1)
Quarter: 2013Q3

REPORT INFORMATION
  Report Type: Report from Study
  Country: CN (occurrence: CN)
  Receive Date: 20130821
  Receipt Date: 20130821
  Transmission Date: 20140515
  Serious: Yes (Other)
  Sender: FDA-Public Use
  Company Number: CN-ROCHE-1262868

PATIENT
  Age: 52 Year
  Sex: Female
  Weight: 60 kg

DRUGS (3)
  1. AVASTIN [Suspect]
     Indication: COLON CANCER
     Route: 042
     Dates: start: 20120615
  2. XELODA [Suspect]
     Indication: COLON CANCER
     Route: 065
  3. OXALIPLATIN [Concomitant]

REACTIONS (1)
  - Bone marrow failure [Recovering/Resolving]
